APPROVED DRUG PRODUCT: LYRICA
Active Ingredient: PREGABALIN
Strength: 20MG/ML
Dosage Form/Route: SOLUTION;ORAL
Application: N022488 | Product #001 | TE Code: AA
Applicant: UPJOHN US 2 LLC
Approved: Jan 4, 2010 | RLD: Yes | RS: Yes | Type: RX